FAERS Safety Report 16360547 (Version 1)
Quarter: 2019Q2

REPORT INFORMATION
  Report Type: Spontaneous
  Country: PT (occurrence: PT)
  Receive Date: 20190528
  Receipt Date: 20190528
  Transmission Date: 20190711
  Serious: Yes (Other)
  Sender: FDA-Public Use
  Company Number: PT-009507513-1905PRT009804

PATIENT
  Age: 36 Year
  Sex: Female
  Weight: 65 kg

DRUGS (1)
  1. IMPLANON [Suspect]
     Active Substance: ETONOGESTREL
     Indication: CONTRACEPTIVE IMPLANT
     Dosage: 1 DOSAGE FORM, EVERY 3 YEARS
     Route: 058
     Dates: start: 20170804, end: 20181130

REACTIONS (2)
  - Pregnancy with implant contraceptive [Unknown]
  - Device ineffective [Unknown]

NARRATIVE: CASE EVENT DATE: 201811
